FAERS Safety Report 14340939 (Version 2)
Quarter: 2018Q1

REPORT INFORMATION
  Report Type: Report from Study
  Country: None (occurrence: TR)
  Receive Date: 20180102
  Receipt Date: 20180115
  Transmission Date: 20180509
  Serious: Yes (Hospitalization, Other)
  Sender: FDA-Public Use
  Company Number: TR-ABBVIE-17K-161-2096296-00

PATIENT
  Age: 60 Year
  Sex: Male
  Weight: 53 kg

DRUGS (12)
  1. DUODOPA [Suspect]
     Active Substance: CARBIDOPA\LEVODOPA
     Route: 050
     Dates: start: 20170927
  2. OMEPROL [Concomitant]
     Active Substance: OMEPRAZOLE
     Indication: PROPHYLAXIS
     Route: 048
     Dates: start: 201612
  3. OMEPROL [Concomitant]
     Active Substance: OMEPRAZOLE
     Indication: PROPHYLAXIS
  4. FLIXOTIDE [Concomitant]
     Active Substance: FLUTICASONE PROPIONATE
     Indication: PNEUMONIA
     Route: 055
     Dates: start: 20161102
  5. GYREX [Concomitant]
     Indication: SLEEP DISORDER
     Route: 048
     Dates: start: 201608
  6. PRABEX [Concomitant]
     Indication: PROPHYLAXIS
  7. LARGACTIL [Concomitant]
     Active Substance: CHLORPROMAZINE
     Indication: ANTIEMETIC SUPPORTIVE CARE
     Dosage: 3X1/4
     Route: 048
     Dates: start: 201701
  8. IPRASAL [Concomitant]
     Indication: PNEUMONIA
     Route: 055
     Dates: start: 2017
  9. DUODOPA [Suspect]
     Active Substance: CARBIDOPA\LEVODOPA
     Indication: PARKINSON^S DISEASE
     Dosage: MORNING DOSE(ML): 7.50?CONTINOUS DOSE(ML): 5.30?EXTRA DOSE(ML): 1.00
     Route: 050
     Dates: start: 20161102, end: 20170919
  10. UROREC [Concomitant]
     Active Substance: SILODOSIN
     Indication: PROSTATIC DISORDER
     Route: 048
     Dates: start: 2011
  11. STALEVO [Concomitant]
     Active Substance: CARBIDOPA\ENTACAPONE\LEVODOPA
     Indication: PARKINSON^S DISEASE
     Route: 048
     Dates: start: 20170919, end: 20170927
  12. OSTEO BI-FLEX [Concomitant]
     Active Substance: CHONDROITIN SULFATE A\GLUCOSAMINE
     Indication: PHYTOTHERAPY
     Route: 048
     Dates: start: 201709, end: 20171218

REACTIONS (8)
  - Bradykinesia [Not Recovered/Not Resolved]
  - Swelling [Not Recovered/Not Resolved]
  - Groin pain [Not Recovered/Not Resolved]
  - Post procedural fever [Recovered/Resolved]
  - Procedural vomiting [Recovered/Resolved]
  - Hypotension [Not Recovered/Not Resolved]
  - Fall [Not Recovered/Not Resolved]
  - Inguinal hernia [Recovered/Resolved]

NARRATIVE: CASE EVENT DATE: 20170905
